FAERS Safety Report 12379378 (Version 3)
Quarter: 2016Q3

REPORT INFORMATION
  Report Type: Spontaneous
  Country: US (occurrence: US)
  Receive Date: 20160517
  Receipt Date: 20160901
  Transmission Date: 20161109
  Serious: No
  Sender: FDA-Public Use
  Company Number: US-RELYPSA-RLY2016000430

PATIENT
  Age: 52 Year
  Sex: Male

DRUGS (9)
  1. OMEPRAZOLE. [Concomitant]
     Active Substance: OMEPRAZOLE
  2. VITAMIN D3 [Concomitant]
     Active Substance: CHOLECALCIFEROL
  3. TANZEUM [Concomitant]
     Active Substance: ALBIGLUTIDE
  4. ATORVASTATIN CALCIUM. [Concomitant]
     Active Substance: ATORVASTATIN CALCIUM
  5. CARVEDILOL. [Concomitant]
     Active Substance: CARVEDILOL
  6. LANTUS [Concomitant]
     Active Substance: INSULIN GLARGINE
  7. FUROSEMIDE. [Concomitant]
     Active Substance: FUROSEMIDE
  8. VELTASSA [Suspect]
     Active Substance: PATIROMER
     Indication: HYPERKALAEMIA
     Dosage: 8.4 G, QD
     Route: 048
     Dates: start: 20160331
  9. LISINOPRIL. [Concomitant]
     Active Substance: LISINOPRIL

REACTIONS (3)
  - Decreased appetite [Unknown]
  - Abdominal discomfort [Unknown]
  - Constipation [Unknown]

NARRATIVE: CASE EVENT DATE: 201604
